FAERS Safety Report 17236990 (Version 1)
Quarter: 2020Q1

REPORT INFORMATION
  Report Type: Report from Study
  Country: US (occurrence: US)
  Receive Date: 20200106
  Receipt Date: 20200106
  Transmission Date: 20200409
  Serious: Yes (Hospitalization, Other)
  Sender: FDA-Public Use
  Company Number: NVSC2019US033608

PATIENT
  Sex: Male
  Weight: 80.7 kg

DRUGS (12)
  1. LEUPROLIDE ACETATE. [Suspect]
     Active Substance: LEUPROLIDE ACETATE
     Indication: PROSTATE CANCER
     Dosage: UNK
     Route: 065
     Dates: start: 201901
  2. SENOKOT-S [Concomitant]
     Active Substance: DOCUSATE SODIUM\SENNOSIDES
     Indication: PRODUCT USED FOR UNKNOWN INDICATION
     Dosage: 1 DF, BID
     Route: 048
  3. ASPIRIN. [Concomitant]
     Active Substance: ASPIRIN
     Indication: PRODUCT USED FOR UNKNOWN INDICATION
     Dosage: 81 MG, QD
     Route: 048
  4. LIPITOR [Concomitant]
     Active Substance: ATORVASTATIN CALCIUM
     Indication: PRODUCT USED FOR UNKNOWN INDICATION
     Dosage: 40 MG, QD
     Route: 048
  5. ACETAMINOPHEN. [Concomitant]
     Active Substance: ACETAMINOPHEN
     Indication: PRODUCT USED FOR UNKNOWN INDICATION
     Dosage: UNK
     Route: 048
  6. VITAMIN B12 [Concomitant]
     Active Substance: CYANOCOBALAMIN
     Indication: PRODUCT USED FOR UNKNOWN INDICATION
     Dosage: 1000 UG, QD
     Route: 048
  7. ZOFRAN [Concomitant]
     Active Substance: ONDANSETRON HYDROCHLORIDE
     Indication: NAUSEA
     Dosage: 1 DF, Q6H
     Route: 065
  8. LOVENOX [Concomitant]
     Active Substance: ENOXAPARIN SODIUM
     Indication: PRODUCT USED FOR UNKNOWN INDICATION
     Dosage: UNK (40MG/0.4 ML)
     Route: 058
  9. MIRALAX [Concomitant]
     Active Substance: POLYETHYLENE GLYCOL 3350
     Indication: PRODUCT USED FOR UNKNOWN INDICATION
     Dosage: 17 G, QD (1 PACKET)
     Route: 048
  10. FLOMAX [Concomitant]
     Active Substance: TAMSULOSIN HYDROCHLORIDE
     Indication: PRODUCT USED FOR UNKNOWN INDICATION
     Dosage: 0.4 MG (EVERY EVENING AFTER DINNER)
     Route: 048
  11. DILAUDID [Concomitant]
     Active Substance: HYDROMORPHONE HYDROCHLORIDE
     Indication: PAIN
     Dosage: 2 MG, Q4H (1 TABLET)
     Route: 048
  12. ZOFRAN [Concomitant]
     Active Substance: ONDANSETRON HYDROCHLORIDE
     Indication: VOMITING

REACTIONS (28)
  - Cancer pain [Unknown]
  - Tachycardia [Unknown]
  - Abdominal pain [Unknown]
  - Dizziness [Unknown]
  - Hypophagia [Unknown]
  - Early satiety [Unknown]
  - Acute pulmonary oedema [Unknown]
  - Increased appetite [Unknown]
  - Urinary hesitation [Unknown]
  - Physical deconditioning [Unknown]
  - Gastrointestinal stromal tumour [Unknown]
  - Fall [Unknown]
  - Weight decreased [Unknown]
  - Metastatic neoplasm [Unknown]
  - Syncope [Unknown]
  - Prostate cancer metastatic [Unknown]
  - Benign prostatic hyperplasia [Unknown]
  - Cerebrovascular accident [Unknown]
  - Arthralgia [Unknown]
  - Failure to thrive [Unknown]
  - Pulmonary oedema [Unknown]
  - Metastases to peritoneum [Unknown]
  - Headache [Unknown]
  - Night sweats [Unknown]
  - Dyspnoea [Unknown]
  - Anaemia of chronic disease [Unknown]
  - Malnutrition [Unknown]
  - Bone lesion [Unknown]
